FAERS Safety Report 11695666 (Version 1)
Quarter: 2015Q4

REPORT INFORMATION
  Report Type: Spontaneous
  Country: US (occurrence: None)
  Receive Date: 20151103
  Receipt Date: 20151103
  Transmission Date: 20160304
  Serious: No
  Sender: FDA-Public Use
  Company Number: None

PATIENT
  Sex: Female

DRUGS (4)
  1. VENLAFAXINE [Concomitant]
     Active Substance: VENLAFAXINE HYDROCHLORIDE
  2. XARELTO [Concomitant]
     Active Substance: RIVAROXABAN
  3. PROMACTA [Suspect]
     Active Substance: ELTROMBOPAG OLAMINE
     Route: 048
     Dates: start: 20150929
  4. CARB/LEVO [Concomitant]
     Active Substance: CARBIDOPA\LEVODOPA

REACTIONS (1)
  - Drug dose omission [None]
